FAERS Safety Report 6526558-4 (Version None)
Quarter: 2010Q1

REPORT INFORMATION
  Report Type: 
  Country: None (occurrence: None)
  Receive Date: 20100105
  Receipt Date: 20091222
  Transmission Date: 20100710
  Serious: Yes (Hospitalization, Other)
  Sender: FDA-Public Use
  Company Number: PHHY2009FR58562

PATIENT
  Sex: Female

DRUGS (5)
  1. VOLTAREN [Suspect]
     Indication: INTERVERTEBRAL DISC COMPRESSION
     Dosage: 75 MG, TID
     Route: 048
     Dates: start: 20090916, end: 20090921
  2. VOLTAREN [Suspect]
     Indication: INTERVERTEBRAL DISC COMPRESSION
     Dosage: 1 DF DAILY
     Route: 003
     Dates: start: 20090916, end: 20090921
  3. SPASFON [Concomitant]
     Dosage: UNK
     Dates: start: 20090917, end: 20090922
  4. EQUANIL [Concomitant]
     Dosage: 3 DF PER DAY
     Dates: end: 20090922
  5. IMODIUM [Concomitant]
     Dosage: UNK
     Dates: start: 20090917, end: 20090922

REACTIONS (7)
  - ABDOMINAL PAIN [None]
  - DIARRHOEA [None]
  - HAEMATOCHEZIA [None]
  - HAEMORRHOIDS [None]
  - NAUSEA [None]
  - RECTAL HAEMORRHAGE [None]
  - RECTAL TENESMUS [None]
